FAERS Safety Report 6666071-7 (Version None)
Quarter: 2010Q2

REPORT INFORMATION
  Report Type: 
  Country: None (occurrence: None)
  Receive Date: 20100402
  Receipt Date: 20100326
  Transmission Date: 20101027
  Serious: Yes (Other)
  Sender: FDA-Public Use
  Company Number: B0639871A

PATIENT
  Age: 47 Year
  Sex: Female

DRUGS (2)
  1. CLOBETASOL PROPIONATE [Suspect]
     Route: 065
  2. HYDROQUINONE [Suspect]
     Route: 065

REACTIONS (4)
  - ANAEMIA MACROCYTIC [None]
  - OCHRONOSIS [None]
  - SQUAMOUS CELL CARCINOMA [None]
  - TUMOUR ULCERATION [None]
